FAERS Safety Report 9435480 (Version 1)
Quarter: 2013Q3

REPORT INFORMATION
  Report Type: Spontaneous
  Country: KR (occurrence: None)
  Receive Date: 20130730
  Receipt Date: 20130730
  Transmission Date: 20140515
  Serious: Yes (Death, Hospitalization)
  Sender: FDA-Public Use
  Company Number: 149746

PATIENT
  Age: 48 Year
  Sex: Female

DRUGS (2)
  1. CARBOPLATIN [Suspect]
     Indication: LEIOMYOSARCOMA
     Dosage: AUC IN 30 MIN INFUSION ON 1 DAY E
  2. PACLITAXEL [Suspect]
     Dosage: 175 MG/M2 IN 3 HR INFUSION

REACTIONS (1)
  - Septic shock [None]
